FAERS Safety Report 6235422-X (Version None)
Quarter: 2009Q2

REPORT INFORMATION
  Report Type: 
  Country: None (occurrence: None)
  Receive Date: 20090615
  Receipt Date: 20090601
  Transmission Date: 20091009
  Serious: Yes (Hospitalization, Other)
  Sender: FDA-Public Use
  Company Number: ADE2009-0652

PATIENT
  Age: 39 Year
  Sex: Male

DRUGS (3)
  1. MELOXICAM [Suspect]
     Indication: INTERVERTEBRAL DISC PROTRUSION
     Dosage: 15MG, BID
  2. DICLOFENAC [Suspect]
     Indication: INTERVERTEBRAL DISC PROTRUSION
     Dosage: 75MG, BID
  3. ASPIRIN [Suspect]
     Indication: ANTIPLATELET THERAPY
     Dosage: 100 MG

REACTIONS (3)
  - CHEST PAIN [None]
  - PLATELET FUNCTION TEST ABNORMAL [None]
  - THROMBOSIS IN DEVICE [None]
